FAERS Safety Report 25077511 (Version 3)
Quarter: 2025Q1

REPORT INFORMATION
  Report Type: Spontaneous
  Country: CN (occurrence: CN)
  Receive Date: 20250314
  Receipt Date: 20250317
  Transmission Date: 20250408
  Serious: Yes (Life-Threatening, Hospitalization)
  Sender: JIANGSU HENGRUI
  Company Number: CN-JIANGSU HENGRUI PHARMACEUTICALS CO., LTD.-H2025205703

PATIENT
  Age: 54 Year
  Weight: 71 kg

DRUGS (2)
  1. OXALIPLATIN [Suspect]
     Active Substance: OXALIPLATIN
     Indication: Ovarian cancer
  2. DEXTROSE [Concomitant]
     Active Substance: DEXTROSE MONOHYDRATE
     Indication: Vehicle solution use

REACTIONS (2)
  - Asphyxia [Recovering/Resolving]
  - Laryngeal oedema [Recovering/Resolving]
